FAERS Safety Report 4604812-0 (Version None)
Quarter: 2005Q2

REPORT INFORMATION
  Report Type: 
  Country: None (occurrence: None)
  Receive Date: 20050224
  Receipt Date: 20041215
  Transmission Date: 20051028
  Serious: Yes (Hospitalization)
  Sender: FDA-Public Use
  Company Number: 04P-163-0284263-00

PATIENT
  Sex: Female

DRUGS (1)
  1. TRIDIONE [Suspect]
     Dates: start: 19400101

REACTIONS (3)
  - ANOREXIA [None]
  - BLOOD CALCIUM INCREASED [None]
  - LIVER FUNCTION TEST ABNORMAL [None]
